FAERS Safety Report 4930217-9 (Version None)
Quarter: 2006Q1

REPORT INFORMATION
  Report Type: 
  Country: None (occurrence: None)
  Receive Date: 20060302
  Receipt Date: 20051218
  Transmission Date: 20060701
  Serious: Yes (Other)
  Sender: FDA-Public Use
  Company Number: GB-ROCHE-429100

PATIENT
  Age: 34 Year
  Sex: Female
  Weight: 112 kg

DRUGS (1)
  1. XENICAL [Suspect]
     Indication: OBESITY
     Route: 048
     Dates: start: 20051213

REACTIONS (3)
  - ANAL FISSURE [None]
  - ANAL HAEMORRHAGE [None]
  - HAEMATOCHEZIA [None]
